FAERS Safety Report 7241485-5 (Version None)
Quarter: 2011Q1

REPORT INFORMATION
  Report Type: 
  Country: None (occurrence: None)
  Receive Date: 20110124
  Receipt Date: 20110113
  Transmission Date: 20110831
  Serious: Yes (Death, Hospitalization, Other)
  Sender: FDA-Public Use
  Company Number: US-ROCHE-698743

PATIENT
  Age: 65 Year
  Sex: Male
  Weight: 93.2 kg

DRUGS (2)
  1. TEMSIROLIMUS [Suspect]
     Dosage: LAST ADMINISTERED DATE: 24 MARCH 2010, ON DAYS 1, 8, 15 AND 22. CYCLE: 28 DAYS
     Route: 042
     Dates: start: 20100324
  2. BEVACIZUMAB [Suspect]
     Dosage: LAST ADMINISTERED DATE: 24 MARCH 2010OVER 30- 90 MINUTES ON DAYS 1 AND 15. CYCLE: 28 DAYS
     Route: 042
     Dates: start: 20100324

REACTIONS (8)
  - PERITONITIS [None]
  - RENAL FAILURE [None]
  - RESPIRATORY FAILURE [None]
  - METABOLIC ACIDOSIS [None]
  - MULTI-ORGAN FAILURE [None]
  - RENAL FAILURE ACUTE [None]
  - DEATH [None]
  - NAUSEA [None]
